FAERS Safety Report 8486904-1 (Version None)
Quarter: 2012Q3

REPORT INFORMATION
  Report Type: 
  Country: None (occurrence: None)
  Receive Date: 20120704
  Receipt Date: 20120622
  Transmission Date: 20120928
  Serious: Yes (Other)
  Sender: FDA-Public Use
  Company Number: US-RB-041825-12

PATIENT
  Age: 28 Year
  Sex: Female

DRUGS (2)
  1. MUCINEX DM [Suspect]
     Indication: OBSESSIVE-COMPULSIVE DISORDER
     Dosage: TAKING FOR THE PAST 5 YEARS
     Route: 048
  2. MUCINEX DM [Suspect]
     Indication: ANXIETY
     Dosage: TAKING FOR THE PAST 5 YEARS
     Route: 048

REACTIONS (6)
  - OFF LABEL USE [None]
  - INCORRECT DRUG ADMINISTRATION DURATION [None]
  - DRUG DEPENDENCE [None]
  - FEELING ABNORMAL [None]
  - NEUROTOXICITY [None]
  - DRUG ABUSE [None]
